FAERS Safety Report 23331112 (Version 1)
Quarter: 2023Q4

REPORT INFORMATION
  Report Type: Spontaneous
  Country: US (occurrence: US)
  Receive Date: 20231222
  Receipt Date: 20231222
  Transmission Date: 20240110
  Serious: Yes (Hospitalization, Other)
  Sender: FDA-Public Use
  Company Number: US-MLMSERVICE-20231211-4719339-1

PATIENT
  Age: 5 Decade
  Sex: Female

DRUGS (2)
  1. CAPECITABINE [Suspect]
     Active Substance: CAPECITABINE
     Indication: Adenocarcinoma gastric
  2. CAPECITABINE [Suspect]
     Active Substance: CAPECITABINE
     Indication: Signet-ring cell carcinoma

REACTIONS (1)
  - Posterior reversible encephalopathy syndrome [Recovering/Resolving]
